APPROVED DRUG PRODUCT: PSEUDOEPHEDRINE HYDROCHLORIDE
Active Ingredient: PSEUDOEPHEDRINE HYDROCHLORIDE
Strength: 120MG
Dosage Form/Route: TABLET, EXTENDED RELEASE;ORAL
Application: A075153 | Product #001
Applicant: L PERRIGO CO
Approved: Feb 26, 1999 | RLD: No | RS: Yes | Type: OTC